FAERS Safety Report 8711164 (Version 2)
Quarter: 2013Q4

REPORT INFORMATION
  Report Type: Report from Study
  Country: US (occurrence: US)
  Receive Date: 20120807
  Receipt Date: 20131101
  Transmission Date: 20140711
  Serious: No
  Sender: FDA-Public Use
  Company Number: US-009507513-1207USA004773

PATIENT
  Age: 64 Year
  Sex: Male
  Weight: 103.6 kg

DRUGS (17)
  1. VICTRELIS [Suspect]
     Dosage: 800 MG, TID
     Route: 048
  2. RIBAPAK [Suspect]
     Dosage: UNK, QD
  3. PEGASYS [Suspect]
     Dosage: 180 MICROGRAM, QM
  4. CENTRUM SILVER [Concomitant]
  5. AMBIEN CR [Concomitant]
     Dosage: 6.25 MG, UNK
  6. AMLODIPINE [Concomitant]
     Dosage: 10 MG, UNK
  7. COUMADIN [Concomitant]
     Dosage: 2 MG, UNK
  8. TRAZODONE HYDROCHLORIDE [Concomitant]
     Dosage: 50 MG, UNK
  9. GABAPENTIN [Concomitant]
     Dosage: 100 MG, UNK
  10. LISINOPRIL [Concomitant]
     Dosage: 40 MG, UNK
  11. PRAVASTATIN SODIUM [Concomitant]
     Dosage: 20 MG, UNK
  12. LEVEMIR [Concomitant]
  13. NOVOLOG [Concomitant]
  14. METOPROLOL SUCCINATE [Concomitant]
     Dosage: 25 MG, UNK
  15. NEXIUM [Concomitant]
     Dosage: 20 MG, UNK
  16. VITAMIN D (UNSPECIFIED) [Concomitant]
     Dosage: UNK
  17. ASCORBIC ACID [Concomitant]
     Dosage: 500 MG, UNK

REACTIONS (2)
  - Anaemia [Unknown]
  - Dysgeusia [Unknown]
